FAERS Safety Report 20318583 (Version 1)
Quarter: 2022Q1

REPORT INFORMATION
  Report Type: Spontaneous
  Country: AR (occurrence: AR)
  Receive Date: 20220110
  Receipt Date: 20220110
  Transmission Date: 20220423
  Serious: Yes (Other)
  Sender: FDA-Public Use
  Company Number: AR-NOVARTISPH-NVSC2022AR003321

PATIENT
  Age: 66 Year
  Sex: Female

DRUGS (2)
  1. EVEROLIMUS [Suspect]
     Active Substance: EVEROLIMUS
     Indication: Product used for unknown indication
     Dosage: UNK
     Route: 065
  2. EXEMESTANE [Suspect]
     Active Substance: EXEMESTANE
     Indication: Product used for unknown indication
     Dosage: UNK
     Route: 065
     Dates: start: 202112

REACTIONS (7)
  - Neoplasm progression [Unknown]
  - Mouth haemorrhage [Unknown]
  - Oral mucosal blistering [Unknown]
  - Hair disorder [Unknown]
  - Paraesthesia [Unknown]
  - Skin burning sensation [Unknown]
  - Skin disorder [Unknown]
